FAERS Safety Report 6089566-6 (Version None)
Quarter: 2009Q1

REPORT INFORMATION
  Report Type: 
  Country: None (occurrence: None)
  Receive Date: 20090217
  Receipt Date: 20090217
  Transmission Date: 20090719
  Serious: Yes (Other)
  Sender: FDA-Public Use
  Company Number: None

PATIENT
  Sex: Female

DRUGS (1)
  1. OTRIVIN [Suspect]
     Indication: NASAL CONGESTION
     Dosage: 1 DF, QDD AT NIGHT, NASAL
     Route: 045

REACTIONS (4)
  - DRUG EXPOSURE DURING PREGNANCY [None]
  - INCORRECT DRUG ADMINISTRATION DURATION [None]
  - NORMAL NEWBORN [None]
  - PREGNANCY [None]
